FAERS Safety Report 6176724-5 (Version None)
Quarter: 2009Q2

REPORT INFORMATION
  Report Type: 
  Country: None (occurrence: None)
  Receive Date: 20090501
  Receipt Date: 20090423
  Transmission Date: 20091009
  Serious: Yes (Other)
  Sender: FDA-Public Use
  Company Number: US-ELI_LILLY_AND_COMPANY-US200904005379

PATIENT
  Sex: Female

DRUGS (4)
  1. HUMULIN R [Suspect]
     Dosage: UNK, UNK
     Dates: start: 20091101
  2. HUMULIN R [Suspect]
     Dates: start: 20090401
  3. GLIMEPIRIDE [Concomitant]
  4. EXFORGE                            /01634301/ [Concomitant]
     Indication: HYPERTENSION

REACTIONS (4)
  - BLOOD GLUCOSE INCREASED [None]
  - DRUG INEFFECTIVE [None]
  - EYE HAEMORRHAGE [None]
  - HYPERTENSION [None]
